FAERS Safety Report 6971779-X (Version None)
Quarter: 2010Q3

REPORT INFORMATION
  Report Type: 
  Country: None (occurrence: None)
  Receive Date: 20100903
  Receipt Date: 20100830
  Transmission Date: 20110219
  Serious: Yes (Death)
  Sender: FDA-Public Use
  Company Number: 2010SP046740

PATIENT
  Age: 40 Year
  Sex: Female

DRUGS (6)
  1. MIRTAZAPINE [Suspect]
     Indication: DEPRESSION
     Dosage: 15 MG; PO, 30 MG; PO, 45 MG; PO
     Route: 048
     Dates: start: 20100428, end: 20100601
  2. MIRTAZAPINE [Suspect]
     Indication: DEPRESSION
     Dosage: 15 MG; PO, 30 MG; PO, 45 MG; PO
     Route: 048
     Dates: start: 20100602, end: 20100615
  3. MIRTAZAPINE [Suspect]
     Indication: DEPRESSION
     Dosage: 15 MG; PO, 30 MG; PO, 45 MG; PO
     Route: 048
     Dates: start: 20100616, end: 20100803
  4. MIRTAZAPINE [Suspect]
     Indication: DEPRESSION
     Dosage: 15 MG; PO, 30 MG; PO, 45 MG; PO
     Route: 048
     Dates: start: 20100804, end: 20100811
  5. QUAZEPAM [Concomitant]
  6. FLUVOXAMINE MALEATE [Concomitant]

REACTIONS (4)
  - AKATHISIA [None]
  - ASPHYXIA [None]
  - COMPLETED SUICIDE [None]
  - MALAISE [None]
